FAERS Safety Report 17686503 (Version 4)
Quarter: 2022Q1

REPORT INFORMATION
  Report Type: Spontaneous
  Country: PL (occurrence: PL)
  Receive Date: 20200420
  Receipt Date: 20220317
  Transmission Date: 20220423
  Serious: Yes (Hospitalization, Other)
  Sender: FDA-Public Use
  Company Number: PL-AUROBINDO-AUR-APL-2020-020037

PATIENT
  Age: 18 Year
  Sex: Male

DRUGS (18)
  1. FLUOXETINE [Suspect]
     Active Substance: FLUOXETINE HYDROCHLORIDE
     Indication: Depression
     Dosage: 20 MILLIGRAM, ONCE A DAY
     Route: 065
  2. OLANZAPINE [Suspect]
     Active Substance: OLANZAPINE
     Indication: Mania
     Dosage: 10 MILLIGRAM, ONCE A DAY
     Route: 065
  3. LAMOTRIGINE [Suspect]
     Active Substance: LAMOTRIGINE
     Indication: Affective disorder
     Dosage: 150 MILLIGRAM, ONCE A DAY
     Route: 065
  4. LAMOTRIGINE [Suspect]
     Active Substance: LAMOTRIGINE
     Indication: Mood altered
  5. LAMOTRIGINE [Suspect]
     Active Substance: LAMOTRIGINE
     Indication: Mood swings
  6. LAMOTRIGINE [Suspect]
     Active Substance: LAMOTRIGINE
     Indication: Bipolar disorder
  7. PERAZINE [Suspect]
     Active Substance: PERAZINE
     Indication: Mania
     Dosage: 100 MILLIGRAM, ONCE A DAY
     Route: 065
  8. VALPROIC ACID [Suspect]
     Active Substance: VALPROIC ACID
     Indication: Mood swings
     Dosage: 900 MILLIGRAM, ONCE A DAY ((AVERAGE LEVEL AFTER 1.5 YEARS: 57.8 UG/ML), ONCE A DAY)
     Route: 005
  9. VALPROIC ACID [Suspect]
     Active Substance: VALPROIC ACID
     Indication: Bipolar disorder
  10. VALPROIC ACID [Suspect]
     Active Substance: VALPROIC ACID
     Indication: Depression
  11. LITHIUM CARBONATE [Suspect]
     Active Substance: LITHIUM CARBONATE
     Indication: Bipolar disorder
     Dosage: 1000 MILLIGRAM, ONCE A DAY
     Route: 065
  12. LITHIUM CARBONATE [Suspect]
     Active Substance: LITHIUM CARBONATE
     Dosage: 750 MILLIGRAM, ONCE A DAY
     Route: 065
  13. MOCLOBEMIDE [Concomitant]
     Active Substance: MOCLOBEMIDE
     Indication: Depression
     Dosage: 225 MILLIGRAM
     Route: 065
  14. MOCLOBEMIDE [Concomitant]
     Active Substance: MOCLOBEMIDE
     Dosage: 150 MILLIGRAM, ONCE A DAY
     Route: 065
  15. VALPROATE SODIUM [Concomitant]
     Active Substance: VALPROATE SODIUM
     Indication: Product used for unknown indication
     Dosage: UNK
     Route: 065
  16. LAMOTRIGINE [Concomitant]
     Active Substance: LAMOTRIGINE
     Indication: Mood altered
     Dosage: 150 MILLIGRAM, ONCE A DAY
     Route: 065
  17. FLUPENTIXOL DIHYDROCHLORIDE [Concomitant]
     Active Substance: FLUPENTIXOL DIHYDROCHLORIDE
     Indication: Bipolar disorder
     Dosage: UNK
     Route: 065
  18. SULPIRIDE [Concomitant]
     Active Substance: SULPIRIDE
     Indication: Bipolar disorder
     Dosage: UNK
     Route: 065

REACTIONS (16)
  - Alanine aminotransferase increased [Unknown]
  - Aspartate aminotransferase increased [Unknown]
  - Dermatitis allergic [Unknown]
  - Increased appetite [Recovering/Resolving]
  - Leukopenia [Unknown]
  - Somnolence [Recovering/Resolving]
  - Weight increased [Unknown]
  - Liver function test increased [Unknown]
  - Tremor [Unknown]
  - Drug ineffective [Recovering/Resolving]
  - Drug hypersensitivity [Unknown]
  - Skin lesion [Unknown]
  - Dysuria [Unknown]
  - Off label use [Unknown]
  - Therapeutic product effect incomplete [Unknown]
  - Depression [Unknown]
